FAERS Safety Report 23796981 (Version 1)
Quarter: 2024Q2

REPORT INFORMATION
  Report Type: Spontaneous
  Country: US (occurrence: US)
  Receive Date: 20240430
  Receipt Date: 20240430
  Transmission Date: 20240716
  Serious: No
  Sender: FDA-Public Use
  Company Number: US-APOTEX-2023AP008701

PATIENT

DRUGS (1)
  1. TRAZODONE HYDROCHLORIDE [Suspect]
     Active Substance: TRAZODONE HYDROCHLORIDE
     Indication: Insomnia
     Dosage: UNK (FOR SEVERAL YEARS NOW)
     Route: 048

REACTIONS (3)
  - Retching [Unknown]
  - Product solubility abnormal [Unknown]
  - Product taste abnormal [Unknown]
